FAERS Safety Report 7528939-9 (Version None)
Quarter: 2011Q2

REPORT INFORMATION
  Report Type: 
  Country: None (occurrence: None)
  Receive Date: 20110607
  Receipt Date: 20110525
  Transmission Date: 20111010
  Serious: Yes (Other)
  Sender: FDA-Public Use
  Company Number: PHHY2011BR46332

PATIENT
  Sex: Female

DRUGS (4)
  1. DIOVAN [Suspect]
     Indication: HYPERTENSION
     Dosage: 80 MG, ONE TABLET DAILY
     Route: 048
  2. OMEPRAZOLE [Concomitant]
     Indication: ABDOMINAL DISCOMFORT
     Dosage: 20 MG, ONE TABLET DAILY
     Route: 048
  3. DIOVAN [Suspect]
     Dosage: 160 MG, ONE TABLET DAILY
     Route: 048
  4. ZYXEM [Concomitant]
     Indication: RHINITIS
     Dosage: 5 MG, ONE TABLET DAILY
     Route: 048

REACTIONS (2)
  - BLOOD CHOLESTEROL INCREASED [None]
  - HYPOTHYROIDISM [None]
